FAERS Safety Report 24571664 (Version 1)
Quarter: 2024Q4

REPORT INFORMATION
  Report Type: Spontaneous
  Country: US (occurrence: None)
  Receive Date: 20241031
  Receipt Date: 20241031
  Transmission Date: 20250114
  Serious: Yes (unspecified)
  Sender: Public
  Company Number: None

PATIENT
  Age: 39 Year
  Sex: Female

DRUGS (1)
  1. FERRLECIT [Suspect]
     Active Substance: SODIUM FERRIC GLUCONATE COMPLEX

REACTIONS (12)
  - Incorrect drug administration rate [None]
  - Headache [None]
  - Infusion related reaction [None]
  - Hypoaesthesia oral [None]
  - Paraesthesia oral [None]
  - Nausea [None]
  - Muscle spasms [None]
  - Burning sensation [None]
  - Paraesthesia [None]
  - Pruritus [None]
  - Pruritus [None]
  - Blood pressure increased [None]

NARRATIVE: CASE EVENT DATE: 20240910
